FAERS Safety Report 8098383-7 (Version None)
Quarter: 2012Q1

REPORT INFORMATION
  Report Type: 
  Country: None (occurrence: None)
  Receive Date: 20120131
  Receipt Date: 20120124
  Transmission Date: 20120608
  Serious: Yes (Hospitalization)
  Sender: FDA-Public Use
  Company Number: US-JNJFOC-20120111797

PATIENT
  Age: 63 Year
  Sex: Female

DRUGS (2)
  1. SUDAFED 12 HOUR [Suspect]
     Indication: SINUS CONGESTION
     Route: 048
  2. SUDAFED 12 HOUR [Suspect]
     Indication: UPPER RESPIRATORY TRACT INFECTION
     Route: 048

REACTIONS (1)
  - CARDIOMYOPATHY [None]
